FAERS Safety Report 10190237 (Version 3)
Quarter: 2014Q3

REPORT INFORMATION
  Report Type: Report from Study
  Country: US (occurrence: US)
  Receive Date: 20140522
  Receipt Date: 20140723
  Transmission Date: 20150326
  Serious: Yes (Death, Other)
  Sender: FDA-Public Use
  Company Number: US-EXELIXIS-CABO-14004200

PATIENT
  Age: 61 Year
  Sex: Male

DRUGS (9)
  1. METOPROLOL [Concomitant]
     Active Substance: METOPROLOL
  2. CABOZANTINIB [Suspect]
     Active Substance: CABOZANTINIB
     Indication: MALIGNANT NEOPLASM OF CHOROID
     Dosage: 60 MG, QD
     Route: 048
     Dates: start: 20140414, end: 20140713
  3. OMEPRAZOLE. [Concomitant]
     Active Substance: OMEPRAZOLE
  4. ASPIRIN. [Concomitant]
     Active Substance: ASPIRIN
  5. OXYCODONE [Concomitant]
     Active Substance: OXYCODONE
  6. AMLODIPINE [Concomitant]
     Active Substance: AMLODIPINE BESYLATE
  7. ATORVASTATIN [Concomitant]
     Active Substance: ATORVASTATIN
  8. ONDANSETRON [Concomitant]
     Active Substance: ONDANSETRON
  9. STOOL SOFTENER [Concomitant]
     Active Substance: DOCUSATE CALCIUM

REACTIONS (9)
  - Night sweats [Unknown]
  - Constipation [Unknown]
  - Malignant neoplasm progression [Fatal]
  - Nausea [Unknown]
  - Dizziness [Unknown]
  - Blood pressure inadequately controlled [Unknown]
  - Postoperative wound infection [Unknown]
  - Fatigue [Unknown]
  - Off label use [Unknown]

NARRATIVE: CASE EVENT DATE: 20140417
